FAERS Safety Report 20323297 (Version 1)
Quarter: 2022Q1

REPORT INFORMATION
  Report Type: Spontaneous
  Country: US (occurrence: None)
  Receive Date: 20220111
  Receipt Date: 20220111
  Transmission Date: 20220424
  Serious: Yes (Hospitalization)
  Sender: FDA-Public Use
  Company Number: None

PATIENT
  Age: 60 Year
  Sex: Male
  Weight: 59.4 kg

DRUGS (6)
  1. DOTAREM [Suspect]
     Active Substance: GADOTERATE MEGLUMINE
     Indication: Magnetic resonance imaging
     Dosage: FREQUENCY : AS NEEDED;?
     Route: 042
     Dates: start: 20220110, end: 20220110
  2. LATANOPROST EYE DROP [Concomitant]
  3. NEXIUM [Concomitant]
  4. CALCIUM CITRATE [Concomitant]
     Active Substance: CALCIUM CITRATE
  5. VITAMIN D3 [Concomitant]
     Active Substance: CHOLECALCIFEROL
  6. B 12 SUPPLEMENTS [Concomitant]

REACTIONS (3)
  - Drug hypersensitivity [None]
  - Contrast media reaction [None]
  - Urticaria [None]

NARRATIVE: CASE EVENT DATE: 20220110
